FAERS Safety Report 6681635-2 (Version None)
Quarter: 2010Q2

REPORT INFORMATION
  Report Type: 
  Country: None (occurrence: None)
  Receive Date: 20100414
  Receipt Date: 20100303
  Transmission Date: 20101027
  Serious: Yes (Other)
  Sender: FDA-Public Use
  Company Number: FR-CEPHALON-2010002171

PATIENT
  Sex: Male

DRUGS (4)
  1. TREANDA [Suspect]
     Indication: ADULT T-CELL LYMPHOMA/LEUKAEMIA
     Dates: start: 20081015, end: 20090122
  2. TREANDA [Suspect]
     Indication: NON-HODGKIN'S LYMPHOMA
  3. MABTHERA [Suspect]
     Indication: ADULT T-CELL LYMPHOMA/LEUKAEMIA
  4. MABTHERA [Suspect]
     Indication: NON-HODGKIN'S LYMPHOMA

REACTIONS (1)
  - HAEMATOTOXICITY [None]
